FAERS Safety Report 9512406 (Version 2)
Quarter: 2015Q2

REPORT INFORMATION
  Report Type: Spontaneous
  Country: IN (occurrence: IN)
  Receive Date: 20130910
  Receipt Date: 20150513
  Transmission Date: 20150821
  Serious: Yes (Hospitalization)
  Sender: FDA-Public Use
  Company Number: PHHY2013IN096044

PATIENT
  Age: 50 Year
  Sex: Male

DRUGS (2)
  1. TACROLIMUS. [Concomitant]
     Active Substance: TACROLIMUS
     Indication: IMMUNOSUPPRESSION
     Route: 065
  2. MYCOPHENOLATE MOFETIL. [Suspect]
     Active Substance: MYCOPHENOLATE MOFETIL
     Indication: IMMUNOSUPPRESSION
     Route: 065

REACTIONS (13)
  - Weight decreased [Recovered/Resolved]
  - Colitis [Recovered/Resolved]
  - Rectal haemorrhage [Recovered/Resolved]
  - Anaemia [Recovered/Resolved]
  - Thrombocytopenia [Recovered/Resolved]
  - Graft versus host disease [Recovered/Resolved]
  - Leukopenia [Recovered/Resolved]
  - Apoptosis [Recovered/Resolved]
  - Ileal ulcer [Recovered/Resolved]
  - Pancytopenia [Recovered/Resolved]
  - Large intestinal ulcer [Recovered/Resolved]
  - Fear of eating [Recovered/Resolved]
  - Pallor [Recovered/Resolved]
